FAERS Safety Report 14142641 (Version 1)
Quarter: 2017Q4

REPORT INFORMATION
  Report Type: Spontaneous
  Country: AT (occurrence: AT)
  Receive Date: 20171030
  Receipt Date: 20171030
  Transmission Date: 20180321
  Serious: Yes (Disabling, Other)
  Sender: FDA-Public Use
  Company Number: AT-ABBVIE-17P-009-2146102-00

PATIENT
  Sex: Male
  Weight: 78 kg

DRUGS (1)
  1. LUPRON DEPOT [Suspect]
     Active Substance: LEUPROLIDE ACETATE
     Indication: PROSTATE CANCER
     Dosage: UNK
     Route: 058
     Dates: start: 201210, end: 20130709

REACTIONS (3)
  - Renal failure [Not Recovered/Not Resolved]
  - Renal atrophy [Not Recovered/Not Resolved]
  - Administration site hypersensitivity [Unknown]
